FAERS Safety Report 19737456 (Version 1)
Quarter: 2021Q3

REPORT INFORMATION
  Report Type: Spontaneous
  Country: US (occurrence: US)
  Receive Date: 20210823
  Receipt Date: 20210823
  Transmission Date: 20211014
  Serious: No
  Sender: FDA-Public Use
  Company Number: US-BRISTOL-MYERS SQUIBB COMPANY-BMS-2021-082225

PATIENT
  Age: 70 Year
  Sex: Female
  Weight: 61.69 kg

DRUGS (2)
  1. OPDIVO [Suspect]
     Active Substance: NIVOLUMAB
     Indication: NEOPLASM MALIGNANT
     Dosage: UNK UNK, Q3WK
     Route: 042
     Dates: start: 20210810
  2. YERVOY [Suspect]
     Active Substance: IPILIMUMAB
     Indication: NEOPLASM MALIGNANT
     Dosage: UNK UNK, Q3WK
     Route: 042
     Dates: start: 20210810

REACTIONS (2)
  - Hypotension [Unknown]
  - Somnolence [Unknown]
